FAERS Safety Report 12931266 (Version 2)
Quarter: 2018Q2

REPORT INFORMATION
  Report Type: Spontaneous
  Country: US (occurrence: US)
  Receive Date: 20161110
  Receipt Date: 20180509
  Transmission Date: 20180711
  Serious: No
  Sender: FDA-Public Use
  Company Number: US-JAZZ-2016-US-018079

PATIENT
  Sex: Female

DRUGS (18)
  1. CAMBIA [Concomitant]
     Active Substance: DICLOFENAC POTASSIUM
  2. AMITRIPTYLINE HCL [Concomitant]
     Active Substance: AMITRIPTYLINE
  3. SYNTHROID [Concomitant]
     Active Substance: LEVOTHYROXINE SODIUM
  4. XYREM [Suspect]
     Active Substance: SODIUM OXYBATE
     Indication: NARCOLEPSY
     Dosage: 2.25 G, BID
     Route: 048
     Dates: start: 201607, end: 201607
  5. XYREM [Suspect]
     Active Substance: SODIUM OXYBATE
     Indication: CATAPLEXY
     Dosage: DOSE ADJUSTMENTS
     Route: 048
     Dates: start: 201607, end: 201608
  6. BOTOX [Concomitant]
     Active Substance: ONABOTULINUMTOXINA
  7. XANAX XR [Concomitant]
     Active Substance: ALPRAZOLAM
  8. HYDROCODONE/ACETAMINOPHEN [Concomitant]
     Active Substance: ACETAMINOPHEN\HYDROCODONE
  9. ZOMIG [Concomitant]
     Active Substance: ZOLMITRIPTAN
  10. MELATONIN [Concomitant]
     Active Substance: MELATONIN
  11. TOPAMAX [Concomitant]
     Active Substance: TOPIRAMATE
  12. LAMOTRIGINE. [Concomitant]
     Active Substance: LAMOTRIGINE
  13. ADVAIR HFA [Concomitant]
     Active Substance: FLUTICASONE PROPIONATE\SALMETEROL XINAFOATE
  14. PROAIR HFA [Concomitant]
     Active Substance: ALBUTEROL SULFATE
  15. XYREM [Suspect]
     Active Substance: SODIUM OXYBATE
     Dosage: 4.5 G, BID
     Route: 048
     Dates: start: 201608
  16. ASPIRIN. [Concomitant]
     Active Substance: ASPIRIN
  17. COENZYME Q10 [Concomitant]
     Active Substance: UBIDECARENONE
  18. FISH OIL CONCENTRATE [Concomitant]
     Active Substance: FISH OIL

REACTIONS (1)
  - Migraine [Not Recovered/Not Resolved]

NARRATIVE: CASE EVENT DATE: 2016
